FAERS Safety Report 26053243 (Version 1)
Quarter: 2025Q4

REPORT INFORMATION
  Report Type: Spontaneous
  Country: US (occurrence: None)
  Receive Date: 20251114
  Receipt Date: 20251114
  Transmission Date: 20260118
  Serious: No
  Sender: FDA-CTU
  Company Number: None

PATIENT
  Age: 80 Year
  Sex: Female

DRUGS (4)
  1. LENALIDOMIDE [Suspect]
     Active Substance: LENALIDOMIDE
     Indication: Plasma cell myeloma
     Dosage: 10MG QD ORAL
     Route: 048
     Dates: start: 20250130, end: 20251030
  2. BORTEZOMIB [Suspect]
     Active Substance: BORTEZOMIB
  3. ASPIRIN [Suspect]
     Active Substance: ASPIRIN
  4. DECADRON [Suspect]
     Active Substance: DEXAMETHASONE

REACTIONS (4)
  - Neuropathy peripheral [None]
  - Gastritis haemorrhagic [None]
  - Myalgia [None]
  - Muscular weakness [None]

NARRATIVE: CASE EVENT DATE: 20251030
